FAERS Safety Report 5509425-4 (Version None)
Quarter: 2007Q4

REPORT INFORMATION
  Report Type: 
  Country: None (occurrence: None)
  Receive Date: 20071107
  Receipt Date: 20071027
  Transmission Date: 20080405
  Serious: Yes (Hospitalization)
  Sender: FDA-Public Use
  Company Number: IT-PFIZER INC-2007090989

PATIENT
  Sex: Female

DRUGS (7)
  1. NORVASC [Suspect]
     Indication: HYPERTENSION
     Dosage: DAILY DOSE:10MG-FREQ:DAILY
     Route: 048
     Dates: start: 20050326, end: 20050418
  2. ASPIRIN [Concomitant]
  3. LASIX [Concomitant]
  4. TENORMIN [Concomitant]
  5. ESKIM [Concomitant]
  6. SELECTIN [Concomitant]
  7. QUARK [Concomitant]

REACTIONS (3)
  - AMNESIA [None]
  - SOPOR [None]
  - SYNCOPE [None]
